FAERS Safety Report 4707213-X (Version None)
Quarter: 2005Q3

REPORT INFORMATION
  Report Type: 
  Country: None (occurrence: None)
  Receive Date: 20050701
  Receipt Date: 20050701
  Transmission Date: 20060218
  Serious: Yes (Hospitalization)
  Sender: FDA-Public Use
  Company Number: None

PATIENT
  Sex: Male
  Weight: 114.5 kg

DRUGS (14)
  1. PILOCARPINE [Suspect]
     Indication: DRY MOUTH
     Dosage: 5MG   QID    ORAL
     Route: 048
     Dates: start: 20050120, end: 20050125
  2. ACETAMINOPHEN [Concomitant]
  3. AMLODIPINE [Concomitant]
  4. ATORVASTATIN CALCIUM [Concomitant]
  5. CALCIUM CARBONATE/VITAMIN D [Concomitant]
  6. HYDROCHLOROTHIAZIDE [Concomitant]
  7. LOPERAMIDE [Concomitant]
  8. LUBRICANT, EYE OINT, [Concomitant]
  9. MECLIZINE [Concomitant]
  10. METOPROLOL [Concomitant]
  11. OMEPRAZOLE [Concomitant]
  12. PREDNISONE TAB [Concomitant]
  13. RANITIDINE [Concomitant]
  14. TRAMADOL [Concomitant]

REACTIONS (2)
  - DEHYDRATION [None]
  - DIARRHOEA [None]
